FAERS Safety Report 6814233-8 (Version None)
Quarter: 2010Q2

REPORT INFORMATION
  Report Type: 
  Country: None (occurrence: None)
  Receive Date: 20100629
  Receipt Date: 20100615
  Transmission Date: 20101027
  Serious: Yes (Hospitalization, Other)
  Sender: FDA-Public Use
  Company Number: JPI-P-011044

PATIENT
  Age: 44 Year
  Sex: Female
  Weight: 55.7924 kg

DRUGS (3)
  1. XYREM [Suspect]
     Indication: INSOMNIA
     Dosage: 4.5 GM (2.25 GM, 2 IN 1 D), ORAL; 6 GM (3 GM, 2 IN 1 D), ORAL; 12 GM (6 GM, 2 IN 1 D), ORAL
     Route: 048
     Dates: start: 20071127
  2. MORPHINE [Suspect]
     Indication: PAIN IN EXTREMITY
     Dosage: 30 MG (15 MG, 1 IN 12 HR), ORAL
     Route: 048
     Dates: start: 20091214
  3. LORAZEPAM [Concomitant]

REACTIONS (7)
  - ANKLE FRACTURE [None]
  - CONVULSION [None]
  - LOWER LIMB FRACTURE [None]
  - NAUSEA [None]
  - PAIN [None]
  - ROAD TRAFFIC ACCIDENT [None]
  - SPEECH DISORDER [None]
